FAERS Safety Report 6626094-0 (Version None)
Quarter: 2010Q1

REPORT INFORMATION
  Report Type: 
  Country: None (occurrence: None)
  Receive Date: 20100309
  Receipt Date: 20100309
  Transmission Date: 20100710
  Serious: Yes (Hospitalization)
  Sender: FDA-Public Use
  Company Number: None

PATIENT
  Age: 52 Year
  Sex: Male
  Weight: 74 kg

DRUGS (1)
  1. VANCOMYCIN [Suspect]
     Dosage: 1500 MG EVERY DAY IV
     Route: 042
     Dates: start: 20090823, end: 20090914

REACTIONS (1)
  - RENAL FAILURE ACUTE [None]
